FAERS Safety Report 7599830-7 (Version None)
Quarter: 2011Q3

REPORT INFORMATION
  Report Type: 
  Country: None (occurrence: None)
  Receive Date: 20110711
  Receipt Date: 20110708
  Transmission Date: 20111222
  Serious: Yes (Hospitalization)
  Sender: FDA-Public Use
  Company Number: JP-B.I. PHARMACEUTICALS,INC./RIDGEFIELD-2011-BP-17112NB

PATIENT
  Age: 73 Year
  Sex: Male

DRUGS (4)
  1. ANPLAG [Concomitant]
     Dosage: 15 MCG
     Route: 048
  2. OPALMON [Concomitant]
     Dosage: 300 MG
     Route: 048
  3. PRADAXA [Suspect]
     Indication: ATRIAL FIBRILLATION
     Dosage: 220 MG
     Route: 048
     Dates: start: 20110621, end: 20110628
  4. WARFARIN SODIUM [Suspect]
     Indication: ATRIAL FIBRILLATION
     Route: 065
     Dates: end: 20110618

REACTIONS (1)
  - CEREBRAL INFARCTION [None]
